FAERS Safety Report 8621462-X (Version None)
Quarter: 2012Q3

REPORT INFORMATION
  Report Type: 
  Country: None (occurrence: None)
  Receive Date: 20120824
  Receipt Date: 20120815
  Transmission Date: 20120928
  Serious: Yes (Hospitalization)
  Sender: FDA-Public Use
  Company Number: IN-ABBOTT-11P-078-0850430-00

PATIENT
  Age: 3 Year
  Sex: Male

DRUGS (2)
  1. VALPROATE SODIUM [Suspect]
     Indication: CONVULSION
     Dosage: 20MG/KG DAILY
     Route: 048
  2. VALPROATE SODIUM [Suspect]
     Indication: GRAND MAL CONVULSION

REACTIONS (16)
  - AMMONIA INCREASED [None]
  - COMA [None]
  - PROTHROMBIN TIME PROLONGED [None]
  - DYSKINESIA [None]
  - CARNITINE DECREASED [None]
  - HEPATOMEGALY [None]
  - BLOOD BILIRUBIN INCREASED [None]
  - HYPERTONIA [None]
  - HYPERAMMONAEMIC ENCEPHALOPATHY [None]
  - CEREBRAL ISCHAEMIA [None]
  - EXTENSOR PLANTAR RESPONSE [None]
  - GRAND MAL CONVULSION [None]
  - ALANINE AMINOTRANSFERASE INCREASED [None]
  - ASPARTATE AMINOTRANSFERASE INCREASED [None]
  - DRUG LEVEL INCREASED [None]
  - BLOOD ALKALINE PHOSPHATASE INCREASED [None]
